FAERS Safety Report 22137866 (Version 2)
Quarter: 2023Q2

REPORT INFORMATION
  Report Type: Report from Study
  Country: NL (occurrence: NL)
  Receive Date: 20230325
  Receipt Date: 20230413
  Transmission Date: 20230721
  Serious: Yes (Hospitalization)
  Sender: FDA-Public Use
  Company Number: NL-TEVA-2023-NL-2868987

PATIENT
  Age: 9 Year
  Sex: Male

DRUGS (7)
  1. ACETAMINOPHEN [Suspect]
     Active Substance: ACETAMINOPHEN
     Indication: Pain
     Dosage: 1500 MILLIGRAM DAILY;
     Route: 048
     Dates: start: 20230215, end: 20230227
  2. METOCLOPRAMIDE [Suspect]
     Active Substance: METOCLOPRAMIDE
     Indication: Nausea
     Dosage: 12 MILLIGRAM DAILY;
     Route: 048
     Dates: start: 20230207, end: 20230227
  3. OXYBUTYNIN [Suspect]
     Active Substance: OXYBUTYNIN
     Indication: Pain
     Dosage: 12.8 MILLIGRAM DAILY;
     Route: 048
     Dates: start: 20230219, end: 20230227
  4. ARIPIPRAZOLE [Suspect]
     Active Substance: ARIPIPRAZOLE
     Indication: Autism spectrum disorder
     Dosage: 2 MILLIGRAM DAILY;
     Route: 048
     Dates: start: 20230202, end: 20230227
  5. CRIZOTINIB [Suspect]
     Active Substance: CRIZOTINIB
     Indication: Malignant melanoma
     Dosage: 600 MILLIGRAM DAILY;
     Route: 048
     Dates: start: 20230211, end: 20230226
  6. CRIZOTINIB [Suspect]
     Active Substance: CRIZOTINIB
     Dosage: 200 MG/M2 DAILY;
     Route: 048
     Dates: start: 20230306
  7. TRAMADOL [Suspect]
     Active Substance: TRAMADOL
     Indication: Pain
     Dosage: 90 MILLIGRAM DAILY;
     Route: 048
     Dates: start: 20230217, end: 20230227

REACTIONS (6)
  - Nausea [Not Recovered/Not Resolved]
  - Vomiting [Recovered/Resolved]
  - Abdominal pain [Unknown]
  - Amylase increased [Recovered/Resolved]
  - Lipase increased [Recovered/Resolved]
  - Product use in unapproved indication [Unknown]

NARRATIVE: CASE EVENT DATE: 20230101
